FAERS Safety Report 4280375-7 (Version None)
Quarter: 2004Q1

REPORT INFORMATION
  Report Type: 
  Country: None (occurrence: None)
  Receive Date: 20040123
  Receipt Date: 20040109
  Transmission Date: 20041129
  Serious: Yes (Hospitalization)
  Sender: FDA-Public Use
  Company Number: 200410221GDDC

PATIENT
  Age: 18 Year
  Sex: Female
  Weight: 56 kg

DRUGS (14)
  1. RIFAMPICIN [Suspect]
     Indication: CYSTIC FIBROSIS
     Dosage: 300 MG BID PO
     Route: 048
     Dates: start: 20031023, end: 20031203
  2. CIPROFLOXACIN [Suspect]
     Indication: CYSTIC FIBROSIS
     Dosage: 1 G BID PO
     Route: 048
     Dates: start: 20031023, end: 20031203
  3. BRICANYL [Concomitant]
  4. COLISTIN SULFATE [Concomitant]
  5. FLUCLOXACILLIN [Concomitant]
  6. AZITHROMYCIN [Concomitant]
  7. INSULIN HUMAN (HUMULIN M3) [Concomitant]
  8. PANCREATIN [Concomitant]
  9. TOCOPHEROL CONCENTRATE CAP [Concomitant]
  10. VITAMIN B COMPLEX CAP [Concomitant]
  11. MEFENAMIC ACID [Concomitant]
  12. LORATADINE (CLARITYN) [Concomitant]
  13. ETHINYLESTRADIOL,NORETHISTERONE (ETHINYLESTRADIOL W/NORETHINDRONE) [Concomitant]
  14. DORNASE ALFA [Concomitant]

REACTIONS (7)
  - BLOOD CREATININE INCREASED [None]
  - BLOOD PHOSPHORUS DECREASED [None]
  - BLOOD UREA INCREASED [None]
  - BLOOD URIC ACID DECREASED [None]
  - CONDITION AGGRAVATED [None]
  - INTERNATIONAL NORMALISED RATIO INCREASED [None]
  - VOMITING [None]
